FAERS Safety Report 5730636-7 (Version None)
Quarter: 2008Q2

REPORT INFORMATION
  Report Type: 
  Country: None (occurrence: None)
  Receive Date: 20080505
  Receipt Date: 20080505
  Transmission Date: 20081010
  Serious: Yes (Other)
  Sender: FDA-Public Use
  Company Number: None

PATIENT
  Age: 55 Year
  Sex: Female
  Weight: 58.0604 kg

DRUGS (1)
  1. FOSAMAX [Suspect]
     Indication: OSTEOPENIA
     Dosage: 1 PILL WEEKLY PO
     Route: 048
     Dates: start: 20080204, end: 20080310

REACTIONS (2)
  - ARTHRALGIA [None]
  - INFLUENZA [None]
